FAERS Safety Report 9152632 (Version 2)
Quarter: 2013Q1

REPORT INFORMATION
  Report Type: Report from Study
  Country: US (occurrence: US)
  Receive Date: 20130308
  Receipt Date: 20130320
  Transmission Date: 20140127
  Serious: Yes (Other)
  Sender: FDA-Public Use
  Company Number: US-PFIZER INC-2013073756

PATIENT
  Age: 56 Year
  Sex: Female

DRUGS (6)
  1. CARBOPLATIN [Suspect]
     Indication: HEAD AND NECK CANCER
     Dates: start: 20120913
  2. CARBOPLATIN [Suspect]
     Indication: METASTATIC SQUAMOUS CELL CARCINOMA
  3. TEMSIROLIMUS [Suspect]
     Indication: HEAD AND NECK CANCER
     Dates: start: 20120913
  4. TEMSIROLIMUS [Suspect]
     Indication: METASTATIC SQUAMOUS CELL CARCINOMA
  5. TAXOL [Suspect]
     Indication: HEAD AND NECK CANCER
     Dates: start: 20120913
  6. TAXOL [Suspect]
     Indication: METASTATIC SQUAMOUS CELL CARCINOMA

REACTIONS (2)
  - Thrombosis [Unknown]
  - Embolism [Unknown]
